FAERS Safety Report 4549158-4 (Version None)
Quarter: 2005Q1

REPORT INFORMATION
  Report Type: 
  Country: None (occurrence: None)
  Receive Date: 20050107
  Receipt Date: 20050107
  Transmission Date: 20050727
  Serious: Yes (Hospitalization)
  Sender: FDA-Public Use
  Company Number: None

PATIENT
  Age: 61 Year
  Sex: Male
  Weight: 84 kg

DRUGS (11)
  1. WARFARIN SODIUM [Suspect]
     Indication: ATRIAL FIBRILLATION
     Dosage: WARFARIN 5MG PO QD
     Route: 048
  2. WARFARIN SODIUM [Suspect]
     Indication: CEREBROVASCULAR ACCIDENT
     Dosage: WARFARIN 5MG PO QD
     Route: 048
  3. AMIODARONE 200 MG [Suspect]
     Indication: ATRIAL FIBRILLATION
     Dosage: AMIODARONE 200 MG PO QD
     Route: 048
  4. ASCORBIC ACID [Concomitant]
  5. ASPIRIN [Concomitant]
  6. CITALOPRAM HYDROBROMIDE [Concomitant]
  7. METOPROLOL TARTRATE [Concomitant]
  8. OMEPRAZOLE [Concomitant]
  9. OXYCODONE AND ACETAMIN [Concomitant]
  10. TRAZODONE [Concomitant]
  11. WARFARIN NA [Concomitant]

REACTIONS (7)
  - COMMUNICATION DISORDER [None]
  - GINGIVAL BLEEDING [None]
  - INJECTION SITE REACTION [None]
  - INTERNATIONAL NORMALISED RATIO INCREASED [None]
  - LETHARGY [None]
  - RETROPERITONEAL HAEMORRHAGE [None]
  - TREMOR [None]
